FAERS Safety Report 5243621-9 (Version None)
Quarter: 2007Q1

REPORT INFORMATION
  Report Type: 
  Country: None (occurrence: None)
  Receive Date: 20070222
  Receipt Date: 20070214
  Transmission Date: 20070707
  Serious: Yes (Hospitalization, Other)
  Sender: FDA-Public Use
  Company Number: 2007UW02750

PATIENT
  Age: 65 Year
  Sex: Male
  Weight: 88 kg

DRUGS (13)
  1. CASODEX [Suspect]
     Indication: PROSTATE CANCER
     Route: 048
     Dates: start: 20070202
  2. RAMIPRIL [Concomitant]
     Dates: start: 20061226
  3. LIPITOR [Concomitant]
     Dates: start: 20061226
  4. AMLODIPINE [Concomitant]
     Dates: start: 20061226
  5. ELTROXIN [Concomitant]
     Dates: start: 20061226
  6. NOVOLIN 50/50 [Concomitant]
     Dosage: 30 / 70
  7. FINASTERIDE [Concomitant]
  8. DOCUSATE [Concomitant]
  9. EPO [Concomitant]
     Dosage: 16000 U MWF
     Dates: start: 20061226
  10. FE FUMARATE [Concomitant]
     Dates: start: 20070104
  11. REPLAVITE [Concomitant]
     Dates: start: 20070104
  12. HYDROMORPHONE HCL [Concomitant]
     Dates: start: 20070117
  13. FAMOTIDINE [Concomitant]
     Dates: start: 20070117

REACTIONS (1)
  - CONVULSION [None]
